FAERS Safety Report 5445446-8 (Version None)
Quarter: 2007Q3

REPORT INFORMATION
  Report Type: 
  Country: None (occurrence: None)
  Receive Date: 20070906
  Receipt Date: 20070827
  Transmission Date: 20080115
  Serious: Yes (Other)
  Sender: FDA-Public Use
  Company Number: US-PFIZER INC-2007071812

PATIENT

DRUGS (1)
  1. SUTENT [Suspect]

REACTIONS (4)
  - ORAL INTAKE REDUCED [None]
  - SKIN EXFOLIATION [None]
  - SKIN LESION [None]
  - STOMATITIS [None]
